FAERS Safety Report 19449675 (Version 1)
Quarter: 2021Q2

REPORT INFORMATION
  Report Type: Spontaneous
  Country: US (occurrence: US)
  Receive Date: 20210622
  Receipt Date: 20210622
  Transmission Date: 20210717
  Serious: No
  Sender: FDA-Public Use
  Company Number: US-SA-2021SA204512

PATIENT
  Age: 61 Year
  Sex: Male

DRUGS (7)
  1. ALBUTEROL [SALBUTAMOL] [Concomitant]
     Active Substance: ALBUTEROL
  2. ATORVASTATIN [Concomitant]
     Active Substance: ATORVASTATIN
  3. ARNUITY ELLIPTA [Concomitant]
     Active Substance: FLUTICASONE FUROATE
  4. MONTELUKAST [Concomitant]
     Active Substance: MONTELUKAST SODIUM
  5. LOSARTAN. [Concomitant]
     Active Substance: LOSARTAN
  6. DUPIXENT [Suspect]
     Active Substance: DUPILUMAB
     Indication: ASTHMA
     Dosage: 300 MG/2ML, QOW
     Route: 058
     Dates: start: 20210120
  7. BUDESONIDE;FORMOTEROL [Concomitant]
     Active Substance: BUDESONIDE\FORMOTEROL

REACTIONS (3)
  - Asthma [Unknown]
  - Impaired quality of life [Unknown]
  - Rash [Unknown]

NARRATIVE: CASE EVENT DATE: 2021
